FAERS Safety Report 22099517 (Version 2)
Quarter: 2025Q3

REPORT INFORMATION
  Report Type: Report from Study
  Country: US (occurrence: US)
  Receive Date: 20230315
  Receipt Date: 20250826
  Transmission Date: 20251021
  Serious: Yes (Other)
  Sender: TAKEDA
  Company Number: US-TAKEDA-2023TUS024090

PATIENT
  Age: 54 Year
  Sex: Male

DRUGS (11)
  1. BRIGATINIB [Suspect]
     Active Substance: BRIGATINIB
     Indication: Lung neoplasm malignant
     Dosage: 180 MILLIGRAM, QD
     Dates: start: 202212, end: 20230307
  2. BRIGATINIB [Suspect]
     Active Substance: BRIGATINIB
  3. ONDANSETRON HYDROCHLORIDE [Concomitant]
     Active Substance: ONDANSETRON HYDROCHLORIDE
  4. PROMETHAZINE HYDROCHLORIDE [Concomitant]
     Active Substance: PROMETHAZINE HYDROCHLORIDE
  5. DEXAMETHASONE [Concomitant]
     Active Substance: DEXAMETHASONE
  6. ORGOVYX [Concomitant]
     Active Substance: RELUGOLIX
     Dosage: 120 MILLIGRAM, QD
  7. TAMSULOSIN HYDROCHLORIDE [Concomitant]
     Active Substance: TAMSULOSIN HYDROCHLORIDE
  8. AMLODIPINE BESYLATE [Concomitant]
     Active Substance: AMLODIPINE BESYLATE
  9. DIAZEPAM [Concomitant]
     Active Substance: DIAZEPAM
  10. ALLOPURINOL [Concomitant]
     Active Substance: ALLOPURINOL
  11. BICALUTAMIDE [Concomitant]
     Active Substance: BICALUTAMIDE

REACTIONS (6)
  - Central nervous system lesion [Unknown]
  - Product dose omission issue [Unknown]
  - Product availability issue [Unknown]
  - Vertigo [Unknown]
  - Muscle spasms [Not Recovered/Not Resolved]
  - Dizziness [Unknown]

NARRATIVE: CASE EVENT DATE: 20230307
